FAERS Safety Report 13422333 (Version 1)
Quarter: 2017Q2

REPORT INFORMATION
  Report Type: Report from Study
  Country: None (occurrence: GB)
  Receive Date: 20170410
  Receipt Date: 20170410
  Transmission Date: 20170830
  Serious: Yes (Other)
  Sender: FDA-Public Use
  Company Number: GB-ABBVIE-17K-167-1936274-00

PATIENT
  Sex: Female

DRUGS (1)
  1. HUMIRA [Suspect]
     Active Substance: ADALIMUMAB
     Indication: CROHN^S DISEASE
     Route: 058

REACTIONS (7)
  - Injection site extravasation [Unknown]
  - Injection site pain [Unknown]
  - Nausea [Unknown]
  - Injection site pruritus [Unknown]
  - Postural orthostatic tachycardia syndrome [Unknown]
  - Injection site erythema [Unknown]
  - Headache [Unknown]
